FAERS Safety Report 7609346-7 (Version None)
Quarter: 2011Q3

REPORT INFORMATION
  Report Type: 
  Country: None (occurrence: None)
  Receive Date: 20110714
  Receipt Date: 20110706
  Transmission Date: 20111222
  Serious: Yes (Death, Hospitalization, Other)
  Sender: FDA-Public Use
  Company Number: PHHY2011PT45884

PATIENT
  Age: 46 Year
  Sex: Male

DRUGS (1)
  1. CARBAMAZEPINE [Suspect]
     Dosage: UNK

REACTIONS (4)
  - EYE DISORDER [None]
  - MULTI-ORGAN FAILURE [None]
  - BACTERIAL SEPSIS [None]
  - TOXIC EPIDERMAL NECROLYSIS [None]
